FAERS Safety Report 11043053 (Version 1)
Quarter: 2015Q2

REPORT INFORMATION
  Report Type: Report from Study
  Country: GB (occurrence: GB)
  Receive Date: 20150417
  Receipt Date: 20150417
  Transmission Date: 20150821
  Serious: Yes (Death)
  Sender: FDA-Public Use
  Company Number: GB-009507513-1504GBR017144

PATIENT
  Age: 65 Year
  Sex: Male

DRUGS (5)
  1. RALTEGRAVIR POTASSIUM [Suspect]
     Active Substance: RALTEGRAVIR POTASSIUM
     Indication: HIV INFECTION
     Dosage: 400 MG, BID
     Route: 048
     Dates: start: 20131016
  2. CODEINE PHOSPHATE [Concomitant]
     Active Substance: CODEINE PHOSPHATE
     Dosage: 2 TABLET, QD
     Route: 048
  3. LODOXAMIDE TROMETHAMINE [Concomitant]
     Active Substance: LODOXAMIDE TROMETHAMINE
     Indication: DIARRHOEA
     Dosage: 2 MG, QD
     Route: 048
  4. NEUROFEN [Concomitant]
     Active Substance: IBUPROFEN
     Dosage: TOTAL DAILY DOSE: 800 MG, PRN
     Route: 048
  5. TRUVADA [Concomitant]
     Active Substance: EMTRICITABINE\TENOFOVIR DISOPROXIL FUMARATE
     Indication: HIV INFECTION
     Dosage: 200MG/245MG, QD
     Route: 048
     Dates: start: 20111221

REACTIONS (1)
  - Completed suicide [Fatal]
